FAERS Safety Report 7965724-8 (Version None)
Quarter: 2011Q4

REPORT INFORMATION
  Report Type: 
  Country: None (occurrence: None)
  Receive Date: 20111208
  Receipt Date: 20111207
  Transmission Date: 20120403
  Serious: Yes (Other)
  Sender: FDA-Public Use
  Company Number: IL-PFIZER INC-2011299160

PATIENT
  Age: 20 Year
  Sex: Female

DRUGS (2)
  1. DIAMOX SRC [Concomitant]
     Dosage: UNK
  2. LYRICA [Suspect]
     Dosage: UNK

REACTIONS (1)
  - INTRACRANIAL PRESSURE INCREASED [None]
